FAERS Safety Report 5056778-X (Version None)
Quarter: 2006Q2

REPORT INFORMATION
  Report Type: 
  Country: None (occurrence: None)
  Receive Date: 20060616
  Receipt Date: 20060503
  Transmission Date: 20061013
  Serious: No
  Sender: FDA-Public Use
  Company Number: 2006US000989

PATIENT
  Age: 80 Year
  Sex: Female

DRUGS (4)
  1. VESICARE [Suspect]
     Indication: URINARY INCONTINENCE
     Dosage: 5 MG
     Dates: start: 20060301
  2. ATENOLOL [Concomitant]
  3. LESCOL [Concomitant]
  4. PREMARIN [Concomitant]

REACTIONS (1)
  - DRUG INEFFECTIVE [None]
